FAERS Safety Report 8472689-1 (Version None)
Quarter: 2012Q2

REPORT INFORMATION
  Report Type: 
  Country: None (occurrence: None)
  Receive Date: 20120627
  Receipt Date: 20120617
  Transmission Date: 20120825
  Serious: Yes (Life-Threatening)
  Sender: FDA-Public Use
  Company Number: IT-CELGENEUS-083-21880-12053277

PATIENT
  Sex: Male

DRUGS (6)
  1. OMEPRAZOLE (PRISOLEC) [Concomitant]
     Dosage: 20 MILLIGRAM
     Route: 048
  2. REVLIMID [Suspect]
     Indication: MULTIPLE MYELOMA
     Dosage: 15 MILLIGRAM
     Route: 048
     Dates: start: 20111118, end: 20120223
  3. DEXAMETHASONE SODIUM PHOSPHATE [Concomitant]
     Indication: MULTIPLE MYELOMA
     Route: 048
     Dates: start: 20111118, end: 20120223
  4. LEVOFLOXACIN [Concomitant]
     Dosage: 250 MILLIGRAM
     Route: 048
     Dates: start: 20120224, end: 20120314
  5. DIFLUCAN [Concomitant]
     Dosage: 200 MILLIGRAM
     Route: 048
  6. LASIX [Concomitant]
     Dosage: 25 MILLIGRAM
     Route: 048

REACTIONS (1)
  - CARDIOGENIC SHOCK [None]
